FAERS Safety Report 6399206-4 (Version None)
Quarter: 2009Q4

REPORT INFORMATION
  Report Type: 
  Country: None (occurrence: None)
  Receive Date: 20091008
  Receipt Date: 20090924
  Transmission Date: 20100525
  Serious: Yes (Death, Hospitalization)
  Sender: FDA-Public Use
  Company Number: RENA-1000512

PATIENT
  Age: 59 Year
  Sex: Male

DRUGS (12)
  1. RENAGEL [Suspect]
     Indication: HYPERPHOSPHATAEMIA
     Dosage: 2.4 G, QD, ORAL
     Route: 048
     Dates: start: 20081015, end: 20081128
  2. NPH INSULIN [Concomitant]
  3. INSULIN (INSULIN) [Concomitant]
  4. LANTUS [Concomitant]
  5. ENALAPRIL MALEATE [Concomitant]
  6. BISOPROLOL FUMARATE [Concomitant]
  7. EXFORGE [Concomitant]
  8. ASPIRIN [Concomitant]
  9. NEURONTIN [Concomitant]
  10. CARNITINE (CARNITINE) [Concomitant]
  11. ERYTHROPOETIN (EPOETIN ALFA) [Concomitant]
  12. HEPARIN [Concomitant]

REACTIONS (3)
  - GENERAL PHYSICAL HEALTH DETERIORATION [None]
  - MYOCARDIAL INFARCTION [None]
  - REFUSAL OF TREATMENT BY RELATIVE [None]
